FAERS Safety Report 24036717 (Version 1)
Quarter: 2024Q3

REPORT INFORMATION
  Report Type: Spontaneous
  Country: JP (occurrence: JP)
  Receive Date: 20240701
  Receipt Date: 20240701
  Transmission Date: 20241017
  Serious: Yes (Other)
  Sender: ELI LILLY AND CO
  Company Number: JP-ELI_LILLY_AND_COMPANY-JP202406016444

PATIENT
  Age: 83 Year
  Sex: Male
  Weight: 65 kg

DRUGS (11)
  1. CYRAMZA [Suspect]
     Active Substance: RAMUCIRUMAB
     Indication: Hepatocellular carcinoma
     Dosage: 8 MG/KG, OTHER
     Route: 041
  2. CYRAMZA [Suspect]
     Active Substance: RAMUCIRUMAB
     Dosage: 6 MG/KG, OTHER
     Route: 041
  3. IMIDAPRIL HYDROCHLORIDE [Concomitant]
     Active Substance: IMIDAPRIL HYDROCHLORIDE
  4. LINAGLIPTIN [Concomitant]
     Active Substance: LINAGLIPTIN
  5. RIVAROXABAN [Concomitant]
     Active Substance: RIVAROXABAN
  6. BISOPROLOL [Concomitant]
     Active Substance: BISOPROLOL\BISOPROLOL FUMARATE
  7. BEPRIDIL HYDROCHLORIDE [Concomitant]
     Active Substance: BEPRIDIL HYDROCHLORIDE
  8. ROSUVASTATIN [Concomitant]
     Active Substance: ROSUVASTATIN
  9. FAMOTIDINE [Concomitant]
     Active Substance: FAMOTIDINE
  10. DUTASTERIDE [Concomitant]
     Active Substance: DUTASTERIDE
  11. SILODOSIN [Concomitant]
     Active Substance: SILODOSIN

REACTIONS (4)
  - Hepatic encephalopathy [Unknown]
  - Ascites [Unknown]
  - Malignant neoplasm progression [Unknown]
  - Malaise [Unknown]
